FAERS Safety Report 5421193-3 (Version None)
Quarter: 2007Q3

REPORT INFORMATION
  Report Type: 
  Country: None (occurrence: None)
  Receive Date: 20070719
  Receipt Date: 20070612
  Transmission Date: 20080115
  Serious: Yes (Other)
  Sender: FDA-Public Use
  Company Number: HQWYE603513JUN07

PATIENT
  Age: 22 Year
  Sex: Female
  Weight: 63.56 kg

DRUGS (2)
  1. ADVIL PM [Suspect]
     Indication: INSOMNIA
     Dosage: 1 CAPLET, 1 TIME, ORAL
     Route: 048
     Dates: start: 20070501, end: 20070501
  2. ADVIL PM [Suspect]
     Indication: PAIN IN EXTREMITY
     Dosage: 1 CAPLET, 1 TIME, ORAL
     Route: 048
     Dates: start: 20070501, end: 20070501

REACTIONS (3)
  - DRUG EFFECT DECREASED [None]
  - ENERGY INCREASED [None]
  - PSYCHOMOTOR HYPERACTIVITY [None]
